FAERS Safety Report 10538400 (Version 1)
Quarter: 2014Q4

REPORT INFORMATION
  Report Type: Spontaneous
  Country: ES (occurrence: GB)
  Receive Date: 20141023
  Receipt Date: 20141023
  Transmission Date: 20150529
  Serious: Yes (Other)
  Sender: FDA-Public Use
  Company Number: GB-FRI-1000071640

PATIENT
  Age: 76 Year
  Sex: Male
  Weight: 75 kg

DRUGS (17)
  1. OMEPRAZOLE. [Concomitant]
     Active Substance: OMEPRAZOLE
     Dates: start: 20140624
  2. SALMETEROL [Concomitant]
     Active Substance: SALMETEROL
     Dates: start: 20140624
  3. TAMSULOSIN HYDROCHLORIDE. [Concomitant]
     Active Substance: TAMSULOSIN HYDROCHLORIDE
     Dates: start: 20140624
  4. NICORANDIL [Concomitant]
     Active Substance: NICORANDIL
     Dates: start: 20140624
  5. WARFARIN SODIUM. [Concomitant]
     Active Substance: WARFARIN SODIUM
     Dates: start: 20140624
  6. FLUXETINE [Concomitant]
     Dates: start: 20140624
  7. SAXAGLIPTIN [Concomitant]
     Active Substance: SAXAGLIPTIN
     Dates: start: 20140624
  8. COCODAMOL [Concomitant]
     Active Substance: ACETAMINOPHEN\CODEINE PHOSPHATE
     Dates: start: 20140624
  9. GLYCERYL TRINITRATE [Concomitant]
     Active Substance: NITROGLYCERIN
     Dates: start: 20140902, end: 20140930
  10. ACLIDINIUM [Suspect]
     Active Substance: ACLIDINIUM BROMIDE
     Dates: start: 20140624, end: 20140930
  11. CLENIL MODULITE [Concomitant]
     Active Substance: BECLOMETHASONE DIPROPIONATE
     Dates: start: 20140624
  12. METFORMIN [Concomitant]
     Active Substance: METFORMIN HYDROCHLORIDE
     Dates: start: 20140624
  13. BUPRENORPHINE HYDROCHLORIDE. [Concomitant]
     Active Substance: BUPRENORPHINE HYDROCHLORIDE
     Dates: start: 20140731
  14. RAMIPRIL. [Concomitant]
     Active Substance: RAMIPRIL
     Dates: start: 20140624
  15. SIMVASTATIN. [Concomitant]
     Active Substance: SIMVASTATIN
     Dates: start: 20140624
  16. FUROSEMIDE. [Concomitant]
     Active Substance: FUROSEMIDE
     Dates: start: 20140624
  17. HYDROXOCOBALAMIN [Concomitant]
     Active Substance: HYDROXOCOBALAMIN
     Dates: start: 20140807

REACTIONS (1)
  - Respiratory distress [Recovering/Resolving]

NARRATIVE: CASE EVENT DATE: 20140909
